FAERS Safety Report 21335093 (Version 5)
Quarter: 2022Q4

REPORT INFORMATION
  Report Type: Report from Study
  Country: CA (occurrence: CA)
  Receive Date: 20220914
  Receipt Date: 20221103
  Transmission Date: 20230113
  Serious: Yes (Other)
  Sender: FDA-Public Use
  Company Number: CA-BRISTOL-MYERS SQUIBB COMPANY-2022-090575

PATIENT
  Age: 61 Year
  Sex: Male
  Weight: 47.5 kg

DRUGS (1)
  1. OPDIVO [Suspect]
     Active Substance: NIVOLUMAB
     Indication: Gastric cancer
     Dosage: BATCH NO: 1913768/1863291; EXP DATE: 30-NOV-2023?BATCH NUMBER:CD3197; EXP DATE: 31-AUG-2024
     Route: 042
     Dates: start: 20220729

REACTIONS (13)
  - Neuropathy peripheral [Unknown]
  - Oedema peripheral [Unknown]
  - Hypotension [Not Recovered/Not Resolved]
  - Nausea [Not Recovered/Not Resolved]
  - Depression [Not Recovered/Not Resolved]
  - Dyspnoea [Not Recovered/Not Resolved]
  - Pain [Unknown]
  - Fatigue [Unknown]
  - Anxiety [Not Recovered/Not Resolved]
  - Somnolence [Not Recovered/Not Resolved]
  - Increased appetite [Unknown]
  - Malaise [Unknown]
  - Condition aggravated [Unknown]
